FAERS Safety Report 5233127-5 (Version None)
Quarter: 2007Q1

REPORT INFORMATION
  Report Type: 
  Country: None (occurrence: None)
  Receive Date: 20070207
  Receipt Date: 20070126
  Transmission Date: 20070707
  Serious: Yes (Other)
  Sender: FDA-Public Use
  Company Number: US-PFIZER INC-2007007166

PATIENT
  Age: 50 Year
  Sex: Female

DRUGS (1)
  1. CHANTIX [Suspect]
     Indication: SMOKING CESSATION THERAPY
     Route: 065
     Dates: start: 20070107, end: 20070118

REACTIONS (10)
  - BALANCE DISORDER [None]
  - CHILLS [None]
  - COMA [None]
  - HEADACHE [None]
  - NAUSEA [None]
  - NERVOUSNESS [None]
  - OVERDOSE [None]
  - PHOTOPHOBIA [None]
  - PYREXIA [None]
  - VOMITING [None]
